FAERS Safety Report 25604672 (Version 2)
Quarter: 2025Q3

REPORT INFORMATION
  Report Type: Report from Study
  Country: US (occurrence: US)
  Receive Date: 20250725
  Receipt Date: 20250815
  Transmission Date: 20251021
  Serious: Yes (Hospitalization, Other)
  Sender: TAKEDA
  Company Number: US-TAKEDA-2025TUS066570

PATIENT
  Age: 75 Year
  Sex: Male

DRUGS (11)
  1. IXAZOMIB [Suspect]
     Active Substance: IXAZOMIB
     Indication: Plasma cell myeloma recurrent
  2. POMALYST [Suspect]
     Active Substance: POMALIDOMIDE
     Indication: Plasma cell myeloma recurrent
  3. MORPHINE SULFATE [Concomitant]
     Active Substance: MORPHINE SULFATE
  4. ACYCLOVIR [Concomitant]
     Active Substance: ACYCLOVIR
  5. LORAZEPAM [Concomitant]
     Active Substance: LORAZEPAM
  6. MONTELUKAST [Concomitant]
     Active Substance: MONTELUKAST
  7. DARZALEX [Concomitant]
     Active Substance: DARATUMUMAB
  8. ELIQUIS [Concomitant]
     Active Substance: APIXABAN
  9. VITAMIN D3 [Concomitant]
     Active Substance: CHOLECALCIFEROL
  10. MAGNESIUM OXIDE [Concomitant]
     Active Substance: MAGNESIUM OXIDE
  11. CALCIUM CITRATE\CHOLECALCIFEROL [Concomitant]
     Active Substance: CALCIUM CITRATE\CHOLECALCIFEROL

REACTIONS (2)
  - Dyspnoea [Unknown]
  - Pneumonia [Recovered/Resolved]

NARRATIVE: CASE EVENT DATE: 20250724
